FAERS Safety Report 8447497-8 (Version None)
Quarter: 2012Q2

REPORT INFORMATION
  Report Type: 
  Country: None (occurrence: None)
  Receive Date: 20120619
  Receipt Date: 20120605
  Transmission Date: 20120825
  Serious: Yes (Death)
  Sender: FDA-Public Use
  Company Number: FR-MYLANLABS-2012S1011759

PATIENT
  Age: 6 Decade
  Sex: Male
  Weight: 48 kg

DRUGS (6)
  1. NEVIRAPINE [Suspect]
     Indication: HIV INFECTION
     Route: 065
     Dates: start: 20050101, end: 20070101
  2. LOPINAVIR [Suspect]
     Indication: HIV INFECTION
     Dosage: BOOSTED
     Route: 065
     Dates: start: 20070101
  3. DIDANOSINE [Suspect]
     Indication: HIV INFECTION
     Dosage: REDUCED TO 250 MG/DAY THEN WITHDRAWN
     Route: 065
  4. EFAVIRENZ [Suspect]
     Indication: HIV INFECTION
     Route: 065
     Dates: end: 20050101
  5. DIDANOSINE [Suspect]
     Dosage: 250 MG/DAY
     Route: 065
  6. NELFINAVIR [Suspect]
     Indication: HIV INFECTION
     Route: 065

REACTIONS (5)
  - NODULAR REGENERATIVE HYPERPLASIA [None]
  - GYNAECOMASTIA [None]
  - OSTEOPOROSIS [None]
  - PORTAL HYPERTENSIVE ENTEROPATHY [None]
  - PORTAL HYPERTENSION [None]
